FAERS Safety Report 8306445-1 (Version None)
Quarter: 2012Q2

REPORT INFORMATION
  Report Type: 
  Country: None (occurrence: None)
  Receive Date: 20120423
  Receipt Date: 20120416
  Transmission Date: 20120825
  Serious: Yes (Disabling)
  Sender: FDA-Public Use
  Company Number: DE-BRISTOL-MYERS SQUIBB COMPANY-16464380

PATIENT
  Age: 48 Year
  Sex: Male
  Weight: 80 kg

DRUGS (7)
  1. AMLODIPINE [Concomitant]
     Indication: CORONARY ARTERY DISEASE
  2. ACETYLSALICYLIC ACID SRT [Concomitant]
     Indication: CORONARY ARTERY DISEASE
     Dosage: ASS 100
  3. ABILIFY [Suspect]
     Indication: SCHIZOPHRENIA
     Route: 048
     Dates: start: 20070101
  4. SIMVASTATIN [Concomitant]
     Indication: CORONARY ARTERY DISEASE
  5. ENALAPRIL MALEATE [Concomitant]
     Indication: CORONARY ARTERY DISEASE
  6. VERAPAMIL [Concomitant]
     Indication: CORONARY ARTERY DISEASE
  7. OMEPRAZOLE [Concomitant]
     Indication: CORONARY ARTERY DISEASE

REACTIONS (2)
  - OSTEOPOROSIS [None]
  - PATHOLOGICAL FRACTURE [None]
